FAERS Safety Report 4944905-1 (Version None)
Quarter: 2006Q1

REPORT INFORMATION
  Report Type: 
  Country: None (occurrence: None)
  Receive Date: 20060130
  Receipt Date: 20051207
  Transmission Date: 20060701
  Serious: Yes (Other)
  Sender: FDA-Public Use
  Company Number: US200512001105

PATIENT
  Sex: Male

DRUGS (1)
  1. ZYPREXA [Suspect]
     Dosage: 10 MG, OTHER, INTRAMUSCULAR
     Route: 030
     Dates: start: 20051101, end: 20051101

REACTIONS (1)
  - CONVULSION [None]
